FAERS Safety Report 15210890 (Version 1)
Quarter: 2018Q3

REPORT INFORMATION
  Report Type: Report from Study
  Country: US (occurrence: US)
  Receive Date: 20180728
  Receipt Date: 20180728
  Transmission Date: 20181010
  Serious: Yes (Hospitalization, Other)
  Sender: FDA-Public Use
  Company Number: US-SAKK-2018SA182034AA

PATIENT
  Age: 81 Year
  Sex: Male

DRUGS (1)
  1. INSULIN GLARGINE [Suspect]
     Active Substance: INSULIN GLARGINE
     Indication: TYPE 2 DIABETES MELLITUS
     Dosage: 35 U, QD
     Route: 058

REACTIONS (8)
  - Prostate cancer [Unknown]
  - Limb operation [Unknown]
  - Prostatic specific antigen increased [Recovering/Resolving]
  - Pleural effusion [Recovering/Resolving]
  - Deafness [Not Recovered/Not Resolved]
  - Dyspnoea exertional [Recovering/Resolving]
  - Amnesia [Not Recovered/Not Resolved]
  - Stent placement [Unknown]

NARRATIVE: CASE EVENT DATE: 2017
